FAERS Safety Report 6589550-X (Version None)
Quarter: 2010Q1

REPORT INFORMATION
  Report Type: 
  Country: None (occurrence: None)
  Receive Date: 20100212
  Receipt Date: 20100202
  Transmission Date: 20100710
  Serious: Yes (Life-Threatening, Hospitalization, Other)
  Sender: FDA-Public Use
  Company Number: POMP-1000810

PATIENT
  Age: 29 Year
  Sex: Female
  Weight: 55 kg

DRUGS (8)
  1. MYOZYME [Suspect]
     Indication: GLYCOGEN STORAGE DISEASE TYPE II
     Dosage: 20 MG/KG, INTRAVENOUS
     Route: 042
     Dates: start: 20060901
  2. MYOZYME [Suspect]
  3. ATACAND (CANDESARTAN CILEXETIL, HYDROCHLOROTHIAZIDE) [Concomitant]
  4. OMEPRAZOLE [Concomitant]
  5. ASPIRIN [Concomitant]
  6. PAROXETIN (PAROXETINE HYDROCHLORIDE) [Concomitant]
  7. FENTANYL CITRATE [Concomitant]
  8. ACC (ACETYLCYSTEINE SODIUM) [Concomitant]

REACTIONS (6)
  - BRONCHITIS BACTERIAL [None]
  - FOREIGN BODY [None]
  - HYPERTENSION [None]
  - HYPOKALAEMIA [None]
  - PLEURODESIS [None]
  - PNEUMONIA ASPIRATION [None]
